FAERS Safety Report 5098276-3 (Version None)
Quarter: 2006Q3

REPORT INFORMATION
  Report Type: 
  Country: None (occurrence: None)
  Receive Date: 20060906
  Receipt Date: 20060606
  Transmission Date: 20061208
  Serious: Yes (Life-Threatening, Hospitalization)
  Sender: FDA-Public Use
  Company Number: US-AVENTIS-200615140US

PATIENT
  Sex: Male
  Weight: 93.18 kg

DRUGS (3)
  1. KETEK [Suspect]
     Indication: EAR INFECTION
     Route: 048
     Dates: start: 20051126, end: 20051128
  2. FLOMAX [Concomitant]
     Dosage: DOSE: UNK
  3. PRILOSEC [Concomitant]
     Dosage: DOSE: UNK

REACTIONS (19)
  - ALANINE AMINOTRANSFERASE INCREASED [None]
  - ASPARTATE AMINOTRANSFERASE INCREASED [None]
  - BLOOD ALBUMIN DECREASED [None]
  - BLOOD ALKALINE PHOSPHATASE INCREASED [None]
  - BLOOD BILIRUBIN INCREASED [None]
  - BLOOD CALCIUM DECREASED [None]
  - BLOOD CHLORIDE DECREASED [None]
  - BLOOD GLUCOSE INCREASED [None]
  - BLOOD POTASSIUM DECREASED [None]
  - BLOOD SODIUM DECREASED [None]
  - EAR PAIN [None]
  - GLOBULINS INCREASED [None]
  - HEADACHE [None]
  - HEPATITIS [None]
  - JAUNDICE [None]
  - PNEUMONIA [None]
  - PROTEIN TOTAL DECREASED [None]
  - PYREXIA [None]
  - VIRAL INFECTION [None]
